FAERS Safety Report 9772253 (Version 2)
Quarter: 2014Q1

REPORT INFORMATION
  Report Type: Spontaneous
  Country: US (occurrence: US)
  Receive Date: 20131219
  Receipt Date: 20140130
  Transmission Date: 20141002
  Serious: Yes (Hospitalization)
  Sender: FDA-Public Use
  Company Number: US-ASTELLAS-2013US012940

PATIENT
  Sex: Male

DRUGS (1)
  1. MYRBETRIQ [Suspect]
     Indication: INCONTINENCE
     Dosage: 50 MG, UNKNOWN/D
     Route: 048

REACTIONS (4)
  - Off label use [Unknown]
  - Intentional drug misuse [Unknown]
  - Medication residue present [Unknown]
  - Decubitus ulcer [Unknown]
